FAERS Safety Report 7358140-3 (Version None)
Quarter: 2011Q1

REPORT INFORMATION
  Report Type: 
  Country: None (occurrence: None)
  Receive Date: 20110314
  Receipt Date: 20110314
  Transmission Date: 20110831
  Serious: Yes (Death, Hospitalization, Disabling)
  Sender: FDA-Public Use
  Company Number: None

PATIENT
  Age: 82 Year
  Sex: Male
  Weight: 78.9259 kg

DRUGS (1)
  1. LUPRON DEPOT [Suspect]
     Indication: NEOPLASM MALIGNANT
     Dosage: 7 1/2 MG 1X MONTHLY INJECTABLE BACK SIDE
     Dates: start: 20100201, end: 20100801

REACTIONS (5)
  - HAEMORRHAGE [None]
  - HOT FLUSH [None]
  - MIGRAINE [None]
  - HEADACHE [None]
  - DIZZINESS [None]
